FAERS Safety Report 10724973 (Version 2)
Quarter: 2015Q1

REPORT INFORMATION
  Report Type: Spontaneous
  Country: FR (occurrence: FR)
  Receive Date: 20150120
  Receipt Date: 20150130
  Transmission Date: 20150721
  Serious: Yes (Other)
  Sender: FDA-Public Use
  Company Number: ALCN2015FR000614

PATIENT
  Age: 5 Year
  Sex: Female

DRUGS (1)
  1. ATROPINE SULFATE. [Suspect]
     Active Substance: ATROPINE SULFATE
     Indication: OPHTHALMOLOGICAL EXAMINATION
     Dosage: UNK
     Route: 047
     Dates: start: 20141230, end: 20150106

REACTIONS (2)
  - Strabismus [Recovering/Resolving]
  - Intentional underdose [Recovering/Resolving]
